FAERS Safety Report 13645344 (Version 3)
Quarter: 2017Q4

REPORT INFORMATION
  Report Type: Report from Study
  Country: BR (occurrence: BR)
  Receive Date: 20170612
  Receipt Date: 20171122
  Transmission Date: 20180320
  Serious: Yes (Other)
  Sender: FDA-Public Use
  Company Number: BR-ELI_LILLY_AND_COMPANY-BR201706004088

PATIENT
  Age: 52 Year
  Sex: Female

DRUGS (2)
  1. CAPECITABINA [Concomitant]
     Active Substance: CAPECITABINE
     Indication: COLORECTAL CANCER METASTATIC
     Route: 048
  2. CETUXIMAB. [Suspect]
     Active Substance: CETUXIMAB
     Indication: COLORECTAL CANCER METASTATIC
     Dosage: UNK UNK, EVERY 15 DAYS
     Route: 042
     Dates: start: 20170221

REACTIONS (15)
  - Colostomy [Unknown]
  - Back pain [Unknown]
  - Headache [Unknown]
  - Skin discolouration [Unknown]
  - Mental disorder [Unknown]
  - Anxiety [Unknown]
  - Off label use [Unknown]
  - Skin injury [Unknown]
  - Weight decreased [Unknown]
  - Nasal dryness [Unknown]
  - Skin fissures [Unknown]
  - Platelet count decreased [Unknown]
  - Decreased immune responsiveness [Unknown]
  - Nervousness [Unknown]
  - Sluggishness [Unknown]

NARRATIVE: CASE EVENT DATE: 2017
